APPROVED DRUG PRODUCT: ALLOPURINOL
Active Ingredient: ALLOPURINOL
Strength: 300MG
Dosage Form/Route: TABLET;ORAL
Application: A078253 | Product #002
Applicant: NORTHSTAR HEALTHCARE HOLDINGS LTD
Approved: Sep 11, 2007 | RLD: No | RS: No | Type: DISCN